FAERS Safety Report 11073154 (Version 1)
Quarter: 2015Q2

REPORT INFORMATION
  Report Type: Report from Study
  Country: US (occurrence: US)
  Receive Date: 20150428
  Receipt Date: 20150428
  Transmission Date: 20150821
  Serious: Yes (Hospitalization)
  Sender: FDA-Public Use
  Company Number: US-RB PHARMACEUTICALS LIMITED-RB-078586-2015

PATIENT
  Age: 28 Year
  Sex: Male

DRUGS (4)
  1. SUBOXONE [Suspect]
     Active Substance: BUPRENORPHINE HYDROCHLORIDE\NALOXONE HYDROCHLORIDE
     Indication: DRUG DEPENDENCE
     Dosage: VARIOUS DOSES, CUTTING AT TIMES FOR ABOUT 4 YEARS
     Route: 060
     Dates: start: 2010, end: 201410
  2. SUBOXONE [Suspect]
     Active Substance: BUPRENORPHINE HYDROCHLORIDE\NALOXONE HYDROCHLORIDE
     Dosage: 8 MG, ONE TIME DOSE
     Route: 060
     Dates: start: 20150421, end: 20150421
  3. SUBOXONE [Suspect]
     Active Substance: BUPRENORPHINE HYDROCHLORIDE\NALOXONE HYDROCHLORIDE
     Dosage: VARIOUS TAPERED DOSES
     Route: 060
     Dates: end: 20150419
  4. SUBOXONE [Suspect]
     Active Substance: BUPRENORPHINE HYDROCHLORIDE\NALOXONE HYDROCHLORIDE
     Dosage: 2.5, 8 MG FILM DAILY
     Route: 060
     Dates: start: 201410

REACTIONS (12)
  - Vomiting [Not Recovered/Not Resolved]
  - Tremor [Not Recovered/Not Resolved]
  - Pruritus [Not Recovered/Not Resolved]
  - Wrong technique in drug usage process [Recovered/Resolved]
  - Drug withdrawal syndrome [Not Recovered/Not Resolved]
  - Formication [Not Recovered/Not Resolved]
  - Condition aggravated [Recovered/Resolved]
  - Insomnia [Not Recovered/Not Resolved]
  - Hyperhidrosis [Not Recovered/Not Resolved]
  - Diarrhoea [Not Recovered/Not Resolved]
  - Alcoholism [Recovered/Resolved]
  - Substance abuse [Recovered/Resolved]

NARRATIVE: CASE EVENT DATE: 2010
